FAERS Safety Report 8494214-1 (Version None)
Quarter: 2012Q3

REPORT INFORMATION
  Report Type: 
  Country: None (occurrence: None)
  Receive Date: 20120709
  Receipt Date: 20120705
  Transmission Date: 20120928
  Serious: Yes (Other)
  Sender: FDA-Public Use
  Company Number: PHHY2012CA047819

PATIENT
  Sex: Female

DRUGS (1)
  1. ZOMETA [Suspect]
     Indication: BREAST CANCER METASTATIC
     Dosage: 4 MG EVERY 4 WEEKS
     Route: 042
     Dates: start: 20120202, end: 20120305

REACTIONS (7)
  - BONE DISORDER [None]
  - MUSCULOSKELETAL STIFFNESS [None]
  - BLOOD PRESSURE DIASTOLIC DECREASED [None]
  - POLLAKIURIA [None]
  - GROIN PAIN [None]
  - ARTHRALGIA [None]
  - FRACTURE [None]
